FAERS Safety Report 8208173-X (Version None)
Quarter: 2012Q1

REPORT INFORMATION
  Report Type: 
  Country: None (occurrence: None)
  Receive Date: 20120314
  Receipt Date: 20120309
  Transmission Date: 20120608
  Serious: Yes (Death)
  Sender: FDA-Public Use
  Company Number: PHHY2012NL021124

PATIENT
  Sex: Female

DRUGS (2)
  1. ZOMETA [Suspect]
     Dosage: 4 MG / 100ML ONCE IN 56 DAYS
     Route: 042
     Dates: start: 20120227, end: 20120227
  2. ZOMETA [Suspect]
     Indication: BREAST CANCER METASTATIC
     Dosage: 4 MG / 100ML ONCE IN 56 DAYS
     Route: 042
     Dates: start: 20090202

REACTIONS (2)
  - NO THERAPEUTIC RESPONSE [None]
  - GENERAL PHYSICAL HEALTH DETERIORATION [None]
